FAERS Safety Report 25703161 (Version 2)
Quarter: 2025Q4

REPORT INFORMATION
  Report Type: Report from Study
  Country: US (occurrence: US)
  Receive Date: 20250820
  Receipt Date: 20251007
  Transmission Date: 20260117
  Serious: Yes (Other)
  Sender: ABBVIE
  Company Number: US-ABBVIE-4732082

PATIENT
  Age: 65 Year
  Sex: Female
  Weight: 104.3 kg

DRUGS (37)
  1. SKYRIZI [Suspect]
     Active Substance: RISANKIZUMAB-RZAA
     Indication: Psoriatic arthropathy
     Dosage: SOLUTION FOR INJECTION IN PRE-FILLED PEN
     Route: 058
     Dates: start: 2020
  2. SKYRIZI [Suspect]
     Active Substance: RISANKIZUMAB-RZAA
     Indication: Psoriasis
  3. METFORMIN [Concomitant]
     Active Substance: METFORMIN HYDROCHLORIDE
     Indication: Diabetes mellitus
  4. OZEMPIC [Suspect]
     Active Substance: SEMAGLUTIDE
     Indication: Product used for unknown indication
     Dosage: STOPPED IN APR 2025
     Route: 065
  5. AFRIN [Concomitant]
     Active Substance: OXYMETAZOLINE HYDROCHLORIDE
     Indication: Product used for unknown indication
     Dosage: 0.05 % NASAL SPRAY, USE 2 SPRAYS IN THE NOSE TWO TIMES A DAY.
  6. ALBUTEROL SULFATE [Concomitant]
     Active Substance: ALBUTEROL SULFATE
     Indication: Wheezing
     Dosage: 90 MCG/ACTUATION INHALER, INHALE 2 PUFFS AS INSTRUCTED EVERY 6 HOURS AS NEEDED
  7. ALBUTEROL [Concomitant]
     Active Substance: ALBUTEROL
     Indication: Wheezing
     Dosage: 2.5 MG /3 ML (0.083 %) NEBULIZER SOLUTION, USE 3 ML VIA NEBULIZER TWO TIMES A DAY AS NEEDED
  8. ALLERGY RELIEF [Concomitant]
     Indication: Product used for unknown indication
     Dosage: STRENGTH: 10 MG
     Route: 048
  9. ANORO ELLIPTA [Concomitant]
     Active Substance: UMECLIDINIUM BROMIDE\VILANTEROL TRIFENATATE
     Indication: Product used for unknown indication
     Dosage: 62.5-25 MCG/ACTUATION INHALER, INHALE 1 INHALATION AS INSTRUCTED ONCE DAILY.
  10. ASPIRIN [Concomitant]
     Active Substance: ASPIRIN
     Indication: Product used for unknown indication
     Dosage: ENTERIC COATED 81 MG TABLET
     Route: 048
  11. AZELASTINE [Concomitant]
     Active Substance: AZELASTINE
     Indication: Product used for unknown indication
     Dosage: USE 2 SPRAYS IN THE NOSE TWO TIMES A DAY.
     Route: 045
  12. CALCIPOTRIENE [Concomitant]
     Active Substance: CALCIPOTRIENE
     Indication: Product used for unknown indication
     Dosage: STRENGTH: 0.005 %, APPLY 1 APPLICATION TO AFFECTED AREA
  13. CALCIUM CITRATE\CHOLECALCIFEROL [Concomitant]
     Active Substance: CALCIUM CITRATE\CHOLECALCIFEROL
     Indication: Product used for unknown indication
     Dosage: TIME INTERVAL: 0.33333333 DAYS: 315 MG-5 MCG, TAKE 1 TABLET BY MOUTH THREE TIMES A DAY WITH MEALS.
     Route: 048
  14. CHLORHEXIDINE GLUCONATE [Concomitant]
     Active Substance: CHLORHEXIDINE GLUCONATE
     Indication: Product used for unknown indication
     Dosage: 0.12 % SOLUTION
  15. CHLORTHALIDONE [Concomitant]
     Active Substance: CHLORTHALIDONE
     Indication: Product used for unknown indication
     Dosage: 25 MG
     Route: 048
  16. DEXLANSOPRAZOLE [Concomitant]
     Active Substance: DEXLANSOPRAZOLE
     Indication: Product used for unknown indication
     Dosage: 60 MG CPDM
     Route: 048
  17. DICLOFENAC [Concomitant]
     Active Substance: DICLOFENAC
     Indication: Product used for unknown indication
     Dosage: 75 MG, ENTERIC-COATED TABLET
     Route: 048
  18. DULOXETINE [Concomitant]
     Active Substance: DULOXETINE
     Indication: Product used for unknown indication
     Route: 048
  19. ERGOCALCIFEROL [Concomitant]
     Active Substance: ERGOCALCIFEROL
     Indication: Product used for unknown indication
     Dosage: 50,000 UNIT, TAKE 1 CAPSULE BY MOUTH ONE TIME A WEE
     Route: 048
  20. FEXOFENADINE [Concomitant]
     Active Substance: FEXOFENADINE HYDROCHLORIDE
     Indication: Product used for unknown indication
     Dosage: 180 MG, TAKE 1 TABLET BY MOUTH ONCE DAILY.
     Route: 048
  21. FLUTICASONE [Concomitant]
     Active Substance: FLUTICASONE
     Indication: Product used for unknown indication
     Dosage: 50 MCG/ACTUATION NASAL SPRAY, USE 2 SPRAYS IN EACH NOSTRIL DAILY AT BEDTIME.
  22. Halobetasol prop [Concomitant]
     Indication: Product used for unknown indication
     Dosage: 0.05 %, APPLY TO AFFECTED AREA.
  23. ACETAMINOPHEN\HYDROCODONE [Concomitant]
     Active Substance: ACETAMINOPHEN\HYDROCODONE
     Indication: Product used for unknown indication
     Dosage: 5-325 MG PER TABLET, TAKE 1 TABLET BY MOUTH EVERY 12 HOURS FOR 30 DAYS.
  24. HYDROXYZINE [Concomitant]
     Active Substance: HYDROXYZINE HYDROCHLORIDE
     Indication: Pruritus
     Dosage: 25 MG, TAKE 1 TABLET BY MOUTH TWICE DAILY AS NEEDED
     Route: 048
  25. IPRATROPIUM BROMIDE [Concomitant]
     Active Substance: IPRATROPIUM BROMIDE
     Indication: Product used for unknown indication
     Dosage: USE 2 SPRAYS IN THE NOSE TWO TIMES A DAY.
     Route: 045
  26. LOSARTAN [Concomitant]
     Active Substance: LOSARTAN
     Indication: Product used for unknown indication
     Dosage: 100 MG
     Route: 048
  27. MECLIZINE [Concomitant]
     Active Substance: MECLIZINE HYDROCHLORIDE
     Indication: Dizziness
     Dosage: TIME INTERVAL: 0.33333333 DAYS: TAKE 25 MG BY MOUTH THREE TIMES A DAY AS NEEDED
     Route: 048
  28. METFORMIN HYDROCHLORIDE [Concomitant]
     Active Substance: METFORMIN HYDROCHLORIDE
     Indication: Product used for unknown indication
     Dosage: 500 MG 24 HR, TAKE 2 TABLETS BY MOUTH DAILY WITH BREAKFAST.
     Route: 048
  29. METOPROLOL SUCCINATE [Concomitant]
     Active Substance: METOPROLOL SUCCINATE
     Indication: Product used for unknown indication
     Dosage: 25 MG 24 HR TABLET
     Route: 048
  30. PRAMIPEXOLE [Concomitant]
     Active Substance: PRAMIPEXOLE
     Indication: Product used for unknown indication
     Dosage: 0.125 MG TABLET
     Route: 048
  31. PREDNISOLONE ACETATE [Concomitant]
     Active Substance: PREDNISOLONE ACETATE
     Indication: Product used for unknown indication
     Dosage: 1 % OPHTHALMIC SUSPENSION, INSTILL 1 DROP IN OPERATIVE EYE(S) 4 TIMES A DAY FOR 1?WEEK, THEN 2 TI...
  32. ROSUVASTATIN [Concomitant]
     Active Substance: ROSUVASTATIN
     Indication: Product used for unknown indication
     Dosage: 20 MG
     Route: 048
  33. SODIUM CHLORIDE [Concomitant]
     Active Substance: SODIUM CHLORIDE
     Indication: Nasopharyngitis
     Dosage: 0.65 % NASAL SPRAY, USE 1 SPRAY IN THE NOSE AS NEEDED.
     Route: 045
  34. SPIRONOLACTONE [Concomitant]
     Active Substance: SPIRONOLACTONE
     Indication: Product used for unknown indication
     Dosage: STRENGTH: 50 MG
     Route: 048
  35. TRAZODONE [Concomitant]
     Active Substance: TRAZODONE HYDROCHLORIDE
     Indication: Product used for unknown indication
     Dosage: TAKE 50 MG BY MOUTH DAILY AT BEDTIME
     Route: 048
  36. JARDIANCE [Concomitant]
     Active Substance: EMPAGLIFLOZIN
     Indication: Diabetes mellitus
     Dosage: 25 MG, TAKE 1 TABLET BY MOUTH EVERY AFTERNOON.
     Route: 048
  37. VOQUEZNA [Concomitant]
     Active Substance: VONOPRAZAN FUMARATE
     Indication: Product used for unknown indication
     Dosage: STRENGTH: 20 MG
     Route: 048

REACTIONS (74)
  - Hepatocellular carcinoma [Unknown]
  - Illness [Recovered/Resolved]
  - Cataract operation [Unknown]
  - Gastroenteritis viral [Recovering/Resolving]
  - Abdominal pain upper [Not Recovered/Not Resolved]
  - Back pain [Not Recovered/Not Resolved]
  - Chronic obstructive pulmonary disease [Unknown]
  - Obstructive sleep apnoea syndrome [Unknown]
  - Positive airway pressure therapy [Unknown]
  - Device intolerance [Unknown]
  - Pulmonary mass [Unknown]
  - Interstitial lung disease [Unknown]
  - Piriformis syndrome [Unknown]
  - Radiculopathy [Unknown]
  - Muscle atrophy [Unknown]
  - Arthralgia [Unknown]
  - Restless legs syndrome [Unknown]
  - Neurogenic bladder [Unknown]
  - Intervertebral disc degeneration [Unknown]
  - Tendonitis [Unknown]
  - Sciatica [Unknown]
  - Arthralgia [Unknown]
  - Pain in extremity [Unknown]
  - Post polio syndrome [Unknown]
  - Tenosynovitis stenosans [Unknown]
  - Arthralgia [Unknown]
  - Rotator cuff syndrome [Unknown]
  - Presbyopia [Unknown]
  - Chronic kidney disease [Unknown]
  - Pain [Unknown]
  - Myofascial pain syndrome [Unknown]
  - Neuralgia [Unknown]
  - Type 2 diabetes mellitus [Unknown]
  - Computerised tomogram abnormal [Unknown]
  - Magnetic resonance imaging abnormal [Unknown]
  - Urinary tract infection [Unknown]
  - Conjunctivitis allergic [Unknown]
  - Chest pain [Unknown]
  - Essential hypertension [Unknown]
  - Vertigo positional [Unknown]
  - Constipation [Unknown]
  - Chronic sinusitis [Unknown]
  - Fatigue [Unknown]
  - Vertigo [Unknown]
  - Hypoacusis [Unknown]
  - Nasal septum deviation [Unknown]
  - Eustachian tube dysfunction [Unknown]
  - Liver function test increased [Unknown]
  - Gastrooesophageal reflux disease [Unknown]
  - Haemangioma of skin [Unknown]
  - Herpes zoster oticus [Unknown]
  - Nasal turbinate hypertrophy [Unknown]
  - Hypoxia [Unknown]
  - Bursitis [Unknown]
  - Major depression [Unknown]
  - Melanocytic naevus [Unknown]
  - Nausea [Unknown]
  - Vomiting [Unknown]
  - Neoplasm skin [Unknown]
  - Osteoarthritis [Unknown]
  - Seborrhoeic keratosis [Unknown]
  - Pain [Unknown]
  - Palmoplantar pustulosis [Unknown]
  - Rash [Unknown]
  - Rash [Unknown]
  - Musculoskeletal chest pain [Unknown]
  - Rotator cuff syndrome [Unknown]
  - Deafness neurosensory [Unknown]
  - Pain of skin [Unknown]
  - Tinea pedis [Unknown]
  - Venous thrombosis [Unknown]
  - Vitamin D deficiency [Unknown]
  - Limb injury [Unknown]
  - Bronchitis [Unknown]

NARRATIVE: CASE EVENT DATE: 20230407
